FAERS Safety Report 4709674-9 (Version None)
Quarter: 2005Q2

REPORT INFORMATION
  Report Type: 
  Country: None (occurrence: None)
  Receive Date: 20050629
  Receipt Date: 20050505
  Transmission Date: 20051028
  Serious: No
  Sender: FDA-Public Use
  Company Number: 05P-163-0299898-00

PATIENT
  Age: 40 Year
  Sex: Female

DRUGS (4)
  1. HUMIRA [Suspect]
     Indication: PSORIATIC ARTHROPATHY
     Dosage: 40 MG, 1 IN 2 WK, SUBCUTANEOUS
     Route: 058
     Dates: start: 20040331, end: 20040812
  2. PREDNISONE TAB [Concomitant]
  3. CELECOXIB [Concomitant]
  4. METHOTREXATE [Concomitant]

REACTIONS (3)
  - ARTHRALGIA [None]
  - PSORIASIS [None]
  - SYSTEMIC LUPUS ERYTHEMATOSUS [None]
